FAERS Safety Report 9817699 (Version 1)
Quarter: 2013Q4

REPORT INFORMATION
  Report Type: Spontaneous
  Country: US (occurrence: None)
  Receive Date: 20131223
  Receipt Date: 20131223
  Transmission Date: 20140711
  Serious: No
  Sender: FDA-Public Use
  Company Number: 219679

PATIENT
  Age: 58 Year
  Sex: Female

DRUGS (3)
  1. PICATO [Suspect]
     Indication: PRECANCEROUS SKIN LESION
     Route: 061
     Dates: start: 20121112, end: 20121114
  2. SYNTHROID (LEVOTHYROXINE SODIUM) [Concomitant]
  3. PROTONIX (PANTOPRAZOLE) [Concomitant]

REACTIONS (6)
  - Application site dryness [None]
  - Application site reaction [None]
  - Application site pain [None]
  - Application site erythema [None]
  - Application site exfoliation [None]
  - Drug administered at inappropriate site [None]
